FAERS Safety Report 15360134 (Version 2)
Quarter: 2018Q4

REPORT INFORMATION
  Report Type: Report from Study
  Country: US (occurrence: US)
  Receive Date: 20180907
  Receipt Date: 20181030
  Transmission Date: 20190204
  Serious: No
  Sender: FDA-Public Use
  Company Number: US-AMGEN-USASL2018122034

PATIENT
  Sex: Female

DRUGS (1)
  1. ENBREL [Suspect]
     Active Substance: ETANERCEPT
     Indication: RHEUMATOID ARTHRITIS
     Dosage: 50 MG, QWK
     Route: 065

REACTIONS (6)
  - Injection site pain [Not Recovered/Not Resolved]
  - Therapy non-responder [Unknown]
  - Fatigue [Unknown]
  - Injection site pruritus [Recovered/Resolved]
  - Urine analysis abnormal [Unknown]
  - Injection site erythema [Recovered/Resolved]
